FAERS Safety Report 6212099-0 (Version None)
Quarter: 2009Q2

REPORT INFORMATION
  Report Type: 
  Country: None (occurrence: None)
  Receive Date: 20090602
  Receipt Date: 20090514
  Transmission Date: 20091009
  Serious: Yes (Other)
  Sender: FDA-Public Use
  Company Number: US-PFIZER INC-2009212907

PATIENT
  Sex: Female
  Weight: 50.794 kg

DRUGS (5)
  1. PROCARDIA [Suspect]
     Indication: HYPERTENSION
     Dosage: 60 MG, 1X/DAY
  2. ACCURETIC [Suspect]
     Indication: HYPERTENSION
  3. LIPITOR [Concomitant]
     Dosage: UNK
  4. VICODIN [Concomitant]
     Dosage: UNK
  5. PLAVIX [Concomitant]
     Dosage: UNK

REACTIONS (4)
  - BLOOD PRESSURE INCREASED [None]
  - MEDICATION RESIDUE [None]
  - PAIN [None]
  - SURGERY [None]
